FAERS Safety Report 9122659 (Version 1)
Quarter: 2013Q1

REPORT INFORMATION
  Report Type: Spontaneous
  Country: FR (occurrence: FR)
  Receive Date: 20130115
  Receipt Date: 20130115
  Transmission Date: 20140127
  Serious: Yes (Hospitalization)
  Sender: FDA-Public Use
  Company Number: FR-009507513-1301FRA003698

PATIENT
  Age: 62 Year
  Sex: Female

DRUGS (1)
  1. CELESTENE [Suspect]
     Indication: PRODUCT USED FOR UNKNOWN INDICATION
     Dosage: UNK
     Route: 048
     Dates: start: 20121109, end: 20121113

REACTIONS (1)
  - Pancreatitis [Recovered/Resolved]
